FAERS Safety Report 23457460 (Version 3)
Quarter: 2024Q3

REPORT INFORMATION
  Report Type: Spontaneous
  Country: DE (occurrence: DE)
  Receive Date: 20240130
  Receipt Date: 20240715
  Transmission Date: 20241017
  Serious: Yes (Hospitalization)
  Sender: PFIZER
  Company Number: DE-Accord-401991

PATIENT
  Age: 5 Year
  Sex: Male
  Weight: 19.9 kg

DRUGS (13)
  1. METHOTREXATE SODIUM [Suspect]
     Active Substance: METHOTREXATE SODIUM
     Indication: B-cell prolymphocytic leukaemia
     Dosage: 12 MG, SINGLE
     Route: 037
     Dates: start: 20231205, end: 20231205
  2. METHOTREXATE SODIUM [Suspect]
     Active Substance: METHOTREXATE SODIUM
     Indication: B-cell prolymphocytic leukaemia
     Dosage: 810 MG, INFUSION OVER 36 HOURS
     Route: 037
     Dates: start: 20231206, end: 20231207
  3. PREDNISOLONE [Suspect]
     Active Substance: PREDNISOLONE
     Indication: B-cell prolymphocytic leukaemia
     Dosage: 10 MG, ONCE
     Route: 037
     Dates: start: 20231205, end: 20231205
  4. DEXAMETHASONE [Suspect]
     Active Substance: DEXAMETHASONE
     Indication: B-cell prolymphocytic leukaemia
     Dosage: 2 MG, TWICE DAILY
     Route: 048
     Dates: start: 20231205, end: 20231211
  5. CYCLOPHOSPHAMIDE [Suspect]
     Active Substance: CYCLOPHOSPHAMIDE
     Indication: B-cell prolymphocytic leukaemia
     Dosage: 162 MG, 5 DOSES ON DAY 2-DAY 4 OF PROTOCOL
     Dates: start: 20231207, end: 20231209
  6. CYTARABINE [Suspect]
     Active Substance: CYTARABINE
     Indication: B-cell prolymphocytic leukaemia
     Dosage: 30 MG, ONCE
     Route: 037
     Dates: start: 20231205, end: 20231205
  7. CYTARABINE [Suspect]
     Active Substance: CYTARABINE
     Indication: B-cell prolymphocytic leukaemia
     Dosage: 1620 MG, TWICE DAILY
     Dates: start: 20231210, end: 20231210
  8. VINCRISTINE SULFATE [Suspect]
     Active Substance: VINCRISTINE SULFATE
     Indication: B-cell prolymphocytic leukaemia
     Dosage: 1.22 ON DAY 1 AND DAY 6
     Dates: start: 20231206, end: 20231211
  9. PEGASPARGASE [Suspect]
     Active Substance: PEGASPARGASE
     Indication: B-cell prolymphocytic leukaemia
     Dosage: 810 IU, ONCE
     Dates: start: 20231211, end: 20231211
  10. COTRIMOXAZOLE [Concomitant]
     Active Substance: SULFAMETHOXAZOLE\TRIMETHOPRIM
     Indication: Immunosuppression
     Dosage: UNK
     Route: 048
     Dates: start: 202311
  11. INOTUZUMAB OZOGAMICIN [Concomitant]
     Active Substance: INOTUZUMAB OZOGAMICIN
     Indication: B-cell prolymphocytic leukaemia
     Dosage: 0.41 MG, ONCE
     Dates: start: 20231107, end: 20231123
  12. AMPHOTERICIN B [Concomitant]
     Active Substance: AMPHOTERICIN B
     Indication: Immunosuppression
     Dosage: UNK
     Dates: start: 20231102
  13. NOVALGIN (METAMIZOLE SODIUM) [Concomitant]
     Active Substance: METAMIZOLE SODIUM
     Dosage: UNK
     Route: 048
     Dates: start: 20231208

REACTIONS (2)
  - Pyrexia [Recovered/Resolved]
  - Mucosal inflammation [Recovered/Resolved]

NARRATIVE: CASE EVENT DATE: 20231216
